FAERS Safety Report 20423611 (Version 2)
Quarter: 2022Q1

REPORT INFORMATION
  Report Type: Spontaneous
  Country: IT (occurrence: IT)
  Receive Date: 20220203
  Receipt Date: 20220218
  Transmission Date: 20220423
  Serious: Yes (Other)
  Sender: FDA-Public Use
  Company Number: IT-TEVA-2022-IT-2003293

PATIENT
  Age: 68 Year
  Sex: Female

DRUGS (25)
  1. VITAMIN C [Interacting]
     Active Substance: ASCORBIC ACID
     Indication: Nutritional supplementation
     Dosage: 500 MILLIGRAM DAILY;
     Route: 065
  2. EPIRUBICIN [Suspect]
     Active Substance: EPIRUBICIN
     Indication: HER2 negative breast cancer
     Dosage: EVERY 3 WEEKS FOR 4 CYCLES
     Route: 065
  3. EPIRUBICIN [Suspect]
     Active Substance: EPIRUBICIN
     Indication: Hormone receptor positive breast cancer
  4. LETROZOLE [Suspect]
     Active Substance: LETROZOLE
     Indication: HER2 negative breast cancer
     Dosage: RECEIVED TREATMENT FOR APPROXIMATELY 3 YEARS
     Route: 065
     Dates: start: 2017, end: 20200514
  5. LETROZOLE [Suspect]
     Active Substance: LETROZOLE
     Indication: Hormone receptor positive breast cancer
  6. FULVESTRANT [Interacting]
     Active Substance: FULVESTRANT
     Indication: Breast cancer metastatic
     Dosage: RECEIVED 3 DOSES AS LOADING DOSE, 500 MG ONCE EVERY 2 WEEKS
     Route: 065
     Dates: start: 20200514
  7. FULVESTRANT [Interacting]
     Active Substance: FULVESTRANT
     Indication: HER2 negative breast cancer
     Dosage: 500 MG ONCE EVERY 4 WEEKS
     Route: 065
     Dates: end: 20200820
  8. FULVESTRANT [Interacting]
     Active Substance: FULVESTRANT
     Indication: Hormone receptor positive breast cancer
  9. PACLITAXEL [Suspect]
     Active Substance: PACLITAXEL
     Indication: HER2 negative breast cancer
     Route: 065
  10. PACLITAXEL [Suspect]
     Active Substance: PACLITAXEL
     Indication: Hormone receptor positive breast cancer
  11. CYCLOPHOSPHAMIDE [Suspect]
     Active Substance: CYCLOPHOSPHAMIDE
     Indication: HER2 negative breast cancer
     Dosage: EVERY 3 WEEKS FOR 4 CYCLES
     Route: 065
  12. CYCLOPHOSPHAMIDE [Suspect]
     Active Substance: CYCLOPHOSPHAMIDE
     Indication: Hormone receptor positive breast cancer
  13. ABEMACICLIB [Interacting]
     Active Substance: ABEMACICLIB
     Indication: HER2 negative breast cancer
     Dosage: 300 MILLIGRAM DAILY;
     Route: 065
     Dates: start: 20200514
  14. ABEMACICLIB [Interacting]
     Active Substance: ABEMACICLIB
     Indication: Breast cancer metastatic
     Dosage: 200 MILLIGRAM DAILY;
     Route: 065
     Dates: end: 20200820
  15. ABEMACICLIB [Interacting]
     Active Substance: ABEMACICLIB
     Indication: Hormone receptor positive breast cancer
  16. BROCCOLI [Interacting]
     Active Substance: BROCCOLI
     Indication: Nutritional supplementation
     Dosage: 500 MILLIGRAM DAILY;
     Route: 065
  17. GARLIC [Interacting]
     Active Substance: GARLIC
     Indication: Nutritional supplementation
     Dosage: 1000 MILLIGRAM DAILY;
     Route: 065
  18. VITAMIN D NOS [Interacting]
     Active Substance: VITAMIN D NOS
     Indication: Vitamin supplementation
     Dosage: HIGH DOSE
     Route: 065
  19. CURCUMIN [Interacting]
     Active Substance: CURCUMIN
     Indication: Nutritional supplementation
     Route: 065
  20. BLACK PEPPER [Interacting]
     Active Substance: BLACK PEPPER
     Indication: Nutritional supplementation
     Dosage: 1052 MILLIGRAM DAILY;
     Route: 065
  21. ALPHA LIPOIC ACID [Interacting]
     Active Substance: .ALPHA.-LIPOIC ACID
     Indication: Nutritional supplementation
     Dosage: 100 MILLIGRAM DAILY;
     Route: 065
  22. COENZYME Q10 [Interacting]
     Active Substance: DIETARY SUPPLEMENT\UBIDECARENONE
     Indication: Nutritional supplementation
     Dosage: 100 MILLIGRAM DAILY;
     Route: 065
  23. VITAMIN K [Suspect]
     Active Substance: PHYTONADIONE
     Indication: Vitamin supplementation
     Dosage: 250 MICROGRAM DAILY;
     Route: 065
  24. IODINE [Interacting]
     Active Substance: IODINE
     Indication: Nutritional supplementation
     Dosage: 150 MICROGRAM DAILY;
     Route: 065
  25. SELENIUM [Interacting]
     Active Substance: SELENIUM
     Dosage: 75 MICROGRAM DAILY;
     Route: 065

REACTIONS (4)
  - Diarrhoea [Recovering/Resolving]
  - Nephropathy toxic [Unknown]
  - Drug ineffective [Unknown]
  - Drug interaction [Unknown]
